FAERS Safety Report 4789494-X (Version None)
Quarter: 2005Q4

REPORT INFORMATION
  Report Type: 
  Country: None (occurrence: None)
  Receive Date: 20051005
  Receipt Date: 20051005
  Transmission Date: 20060501
  Serious: Yes (Life-Threatening, Hospitalization)
  Sender: FDA-Public Use
  Company Number: None

PATIENT
  Age: 59 Year
  Sex: Male
  Weight: 84 kg

DRUGS (8)
  1. MORPHINE [Suspect]
     Indication: PAIN
     Dosage: 0/2/10
     Dates: start: 20050417
  2. ANCEF [Concomitant]
  3. GABAPENTIN [Concomitant]
  4. HEPARIN [Concomitant]
  5. METOPROLOL [Concomitant]
  6. RANITIDINE [Concomitant]
  7. DOCUSATE [Concomitant]
  8. MOM [Concomitant]

REACTIONS (6)
  - ANGIONEUROTIC OEDEMA [None]
  - OXYGEN SATURATION DECREASED [None]
  - STRIDOR [None]
  - THERAPY NON-RESPONDER [None]
  - THROAT TIGHTNESS [None]
  - WHEEZING [None]
